FAERS Safety Report 6250262-3 (Version None)
Quarter: 2009Q2

REPORT INFORMATION
  Report Type: 
  Country: None (occurrence: None)
  Receive Date: 20090626
  Receipt Date: 20090626
  Transmission Date: 20091009
  Serious: No
  Sender: FDA-Public Use
  Company Number: None

PATIENT
  Age: 52 Year
  Sex: Female
  Weight: 54.4316 kg

DRUGS (1)
  1. GELNIQUE [Suspect]
     Indication: HYPERTONIC BLADDER
     Dosage: ONE PKT OF GELL DAILY TOP
     Route: 061
     Dates: start: 20090601, end: 20090624

REACTIONS (6)
  - ABNORMAL SENSATION IN EYE [None]
  - MEDICATION ERROR [None]
  - MIGRAINE [None]
  - MYDRIASIS [None]
  - PRODUCT LABEL ISSUE [None]
  - STRABISMUS [None]
